FAERS Safety Report 18252616 (Version 1)
Quarter: 2020Q3

REPORT INFORMATION
  Report Type: Spontaneous
  Country: US (occurrence: US)
  Receive Date: 20200910
  Receipt Date: 20200910
  Transmission Date: 20201103
  Serious: No
  Sender: FDA-Public Use
  Company Number: US-HIKMA PHARMACEUTICALS USA INC.-US-H14001-20-01958

PATIENT
  Age: 86 Year
  Sex: Female

DRUGS (1)
  1. DIGOXIN ORAL SOLUTION [Suspect]
     Active Substance: DIGOXIN
     Indication: PRODUCT USED FOR UNKNOWN INDICATION
     Route: 048

REACTIONS (3)
  - Tachycardia [Unknown]
  - Drug interaction [Unknown]
  - Fatigue [Unknown]

NARRATIVE: CASE EVENT DATE: 202002
